FAERS Safety Report 14424116 (Version 1)
Quarter: 2018Q1

REPORT INFORMATION
  Report Type: Spontaneous
  Country: FR (occurrence: FR)
  Receive Date: 20180123
  Receipt Date: 20180123
  Transmission Date: 20180509
  Serious: Yes (Hospitalization)
  Sender: FDA-Public Use
  Company Number: PHHY2018FR010161

PATIENT
  Age: 67 Year
  Sex: Female
  Weight: 146 kg

DRUGS (2)
  1. TAFINLAR [Suspect]
     Active Substance: DABRAFENIB MESYLATE
     Indication: MALIGNANT MELANOMA
     Dosage: 2 ?G/L, UNK
     Route: 048
  2. MEKINIST [Suspect]
     Active Substance: TRAMETINIB DIMETHYL SULFOXIDE
     Indication: MALIGNANT MELANOMA
     Dosage: 1 ?G/L, UNK
     Route: 048

REACTIONS (3)
  - Hepatocellular injury [Recovering/Resolving]
  - Cholestasis [Recovered/Resolved]
  - Acute kidney injury [Recovered/Resolved]

NARRATIVE: CASE EVENT DATE: 20171024
